FAERS Safety Report 20796896 (Version 2)
Quarter: 2022Q4

REPORT INFORMATION
  Report Type: Spontaneous
  Country: NO (occurrence: NO)
  Receive Date: 20220506
  Receipt Date: 20221222
  Transmission Date: 20230113
  Serious: Yes (Death, Other)
  Sender: FDA-Public Use
  Company Number: NO-BRISTOL-MYERS SQUIBB COMPANY-2022-031214

PATIENT

DRUGS (8)
  1. APIXABAN [Suspect]
     Active Substance: APIXABAN
     Indication: Amyloidosis
  2. APIXABAN [Suspect]
     Active Substance: APIXABAN
     Indication: Cardiac disorder
  3. ENALAPRIL [Suspect]
     Active Substance: ENALAPRIL
     Indication: Amyloidosis
  4. ENALAPRIL [Suspect]
     Active Substance: ENALAPRIL
     Indication: Cardiac disorder
  5. METOPROLOL TARTRATE [Suspect]
     Active Substance: METOPROLOL TARTRATE
     Indication: Amyloidosis
  6. METOPROLOL TARTRATE [Suspect]
     Active Substance: METOPROLOL TARTRATE
     Indication: Cardiac disorder
  7. BUMETANIDE [Suspect]
     Active Substance: BUMETANIDE
     Indication: Amyloidosis
  8. BUMETANIDE [Suspect]
     Active Substance: BUMETANIDE
     Indication: Cardiac disorder

REACTIONS (6)
  - Hip fracture [Fatal]
  - Pneumonia [Fatal]
  - Cardiac failure [Unknown]
  - Polyneuropathy [Unknown]
  - Off label use [Unknown]
  - Right ventricular hypertrophy [Unknown]

NARRATIVE: CASE EVENT DATE: 20200101
